FAERS Safety Report 6039412-1 (Version None)
Quarter: 2009Q1

REPORT INFORMATION
  Report Type: 
  Country: None (occurrence: None)
  Receive Date: 20090114
  Receipt Date: 20081229
  Transmission Date: 20090719
  Serious: Yes (Death, Life-Threatening)
  Sender: FDA-Public Use
  Company Number: 2008RS0179

PATIENT
  Age: 27 Day
  Sex: Female
  Weight: 4.7 kg

DRUGS (5)
  1. ORFADIN [Suspect]
     Indication: TYROSINAEMIA
     Dosage: 0,851 MG/KG,  ORAL
     Route: 048
     Dates: start: 20080720, end: 20080726
  2. FENTANYL [Concomitant]
  3. DOPAMINE HCL [Concomitant]
  4. RANITIDINE [Concomitant]
  5. URSO FALK [Concomitant]

REACTIONS (7)
  - ACINETOBACTER INFECTION [None]
  - ACUTE RESPIRATORY DISTRESS SYNDROME [None]
  - BACTERIAL SEPSIS [None]
  - CONDITION AGGRAVATED [None]
  - GENERAL PHYSICAL HEALTH DETERIORATION [None]
  - HEPATIC FAILURE [None]
  - RENAL FAILURE ACUTE [None]
